FAERS Safety Report 5178965-2 (Version None)
Quarter: 2006Q4

REPORT INFORMATION
  Report Type: 
  Country: None (occurrence: None)
  Receive Date: 20061213
  Receipt Date: 20061213
  Transmission Date: 20070319
  Serious: Yes (Other)
  Sender: FDA-Public Use
  Company Number: None

PATIENT
  Sex: Male
  Weight: 61.2356 kg

DRUGS (1)
  1. EQUETRO [Suspect]
     Indication: BIPOLAR DISORDER
     Dosage: 1 CAPSULE  2 TIMES DAILY  PO
     Route: 048
     Dates: start: 20060802, end: 20061102

REACTIONS (6)
  - ACARODERMATITIS [None]
  - CHEST PAIN [None]
  - DYSPEPSIA [None]
  - GASTROOESOPHAGEAL REFLUX DISEASE [None]
  - RASH [None]
  - STAPHYLOCOCCAL INFECTION [None]
